FAERS Safety Report 15746984 (Version 1)
Quarter: 2018Q4

REPORT INFORMATION
  Report Type: Spontaneous
  Country: IN (occurrence: IN)
  Receive Date: 20181220
  Receipt Date: 20181220
  Transmission Date: 20190205
  Serious: Yes (Life-Threatening, Hospitalization)
  Sender: FDA-Public Use
  Company Number: IN-MYLANLABS-2018M1094503

PATIENT
  Age: 30 Year
  Sex: Female

DRUGS (3)
  1. LEVOSIMENDAN [Suspect]
     Active Substance: LEVOSIMENDAN
     Indication: LEFT VENTRICULAR DYSFUNCTION
     Dosage: INJECTION
     Route: 050
  2. EPINEPHRINE. [Suspect]
     Active Substance: EPINEPHRINE
     Indication: FUNCTIONAL ENDOSCOPIC SINUS SURGERY
     Dosage: INTRAMUCOSAL INFILTRATION
  3. NOREPINEPHRINE. [Suspect]
     Active Substance: NOREPINEPHRINE
     Indication: PRODUCT USED FOR UNKNOWN INDICATION
     Dosage: 1 MICROGRAM PER KILOGRAM, INFUSION
     Route: 050

REACTIONS (7)
  - Electrocardiogram ST segment elevation [Recovered/Resolved]
  - Ventricular fibrillation [Recovered/Resolved]
  - Stress cardiomyopathy [Recovered/Resolved]
  - Shock [Recovered/Resolved]
  - Left ventricular dysfunction [Recovered/Resolved]
  - Metabolic acidosis [Recovered/Resolved]
  - Acute kidney injury [Recovered/Resolved]
